FAERS Safety Report 23122712 (Version 4)
Quarter: 2025Q1

REPORT INFORMATION
  Report Type: Spontaneous
  Country: US (occurrence: US)
  Receive Date: 20231030
  Receipt Date: 20250226
  Transmission Date: 20250409
  Serious: No
  Sender: UCB
  Company Number: US-UCBSA-2023024915

PATIENT
  Age: 34 Year
  Sex: Female

DRUGS (8)
  1. LEVETIRACETAM [Suspect]
     Active Substance: LEVETIRACETAM
     Indication: Seizure
  2. LACOSAMIDE [Suspect]
     Active Substance: LACOSAMIDE
     Indication: Seizure
  3. VALPROIC ACID [Suspect]
     Active Substance: VALPROIC ACID
     Indication: Seizure
  4. PROPOFOL [Suspect]
     Active Substance: PROPOFOL
     Indication: Seizure
  5. PHENOBARBITAL [Suspect]
     Active Substance: PHENOBARBITAL
     Indication: Seizure
  6. TOPIRAMATE [Suspect]
     Active Substance: TOPIRAMATE
     Indication: Seizure
  7. PERAMPANEL [Suspect]
     Active Substance: PERAMPANEL
     Indication: Seizure
  8. KETAMINE [Suspect]
     Active Substance: KETAMINE
     Indication: Seizure

REACTIONS (1)
  - Multiple-drug resistance [Unknown]
